FAERS Safety Report 19951387 (Version 1)
Quarter: 2021Q4

REPORT INFORMATION
  Report Type: Spontaneous
  Country: US (occurrence: US)
  Receive Date: 20211013
  Receipt Date: 20211013
  Transmission Date: 20220303
  Serious: No
  Sender: FDA-Public Use
  Company Number: US-ORGANON-O2109USA002253

PATIENT
  Age: 32 Year
  Sex: Female

DRUGS (4)
  1. MAXALT [Suspect]
     Active Substance: RIZATRIPTAN BENZOATE
     Indication: Headache
     Dosage: UNK
  2. TOPIRAMATE [Concomitant]
     Active Substance: TOPIRAMATE
     Indication: Headache
     Dosage: UNK
  3. TOPIRAMATE [Concomitant]
     Active Substance: TOPIRAMATE
     Dosage: INCREASED TO 100MG
  4. TIZANIDINE [Concomitant]
     Active Substance: TIZANIDINE
     Indication: Headache
     Dosage: 4 MILLIGRAM, Q8H, PRN

REACTIONS (1)
  - Product use in unapproved indication [Unknown]
